FAERS Safety Report 4551895-2 (Version None)
Quarter: 2005Q1

REPORT INFORMATION
  Report Type: 
  Country: None (occurrence: None)
  Receive Date: 20050107
  Receipt Date: 20041223
  Transmission Date: 20050727
  Serious: Yes (Death, Life-Threatening, Hospitalization)
  Sender: FDA-Public Use
  Company Number: 105192ISR

PATIENT
  Age: 74 Year
  Sex: Female

DRUGS (7)
  1. FLUOROURACIL [Suspect]
     Indication: COLON CANCER
     Route: 042
     Dates: start: 20040423, end: 20040831
  2. OXALIPLATIN [Suspect]
     Indication: COLON CANCER
     Dosage: 160 MILLIGRAM
     Route: 042
     Dates: start: 20040423, end: 20040625
  3. LEUCOVORIN CALCIUM [Suspect]
     Indication: COLON CANCER
     Dosage: 750 MILLIGRAM
     Route: 042
     Dates: start: 20040423, end: 20040625
  4. PRAZEPAM [Concomitant]
  5. MIANSERIN HYDROBROMIDE [Concomitant]
  6. METHYLPREDNISOLONE SODIUM SUCCINATE [Concomitant]
  7. CITALOPRAM HYDROCHLORIDE [Concomitant]

REACTIONS (2)
  - BONE MARROW DEPRESSION [None]
  - MUCOSAL INFLAMMATION [None]
